FAERS Safety Report 4912755-8 (Version None)
Quarter: 2006Q1

REPORT INFORMATION
  Report Type: 
  Country: None (occurrence: None)
  Receive Date: 20060213
  Receipt Date: 20060127
  Transmission Date: 20060701
  Serious: Yes (Hospitalization)
  Sender: FDA-Public Use
  Company Number: 221871

PATIENT

DRUGS (4)
  1. HERCEPTIN [Suspect]
     Indication: BREAST CANCER
     Dosage: Q3W
  2. ZOMETA [Concomitant]
  3. TAXOL [Concomitant]
  4. DEXAMETHASONE [Concomitant]

REACTIONS (4)
  - DEHYDRATION [None]
  - SKIN DISORDER [None]
  - THERMAL BURN [None]
  - WOUND [None]
